FAERS Safety Report 7021094-3 (Version None)
Quarter: 2010Q3

REPORT INFORMATION
  Report Type: 
  Country: None (occurrence: None)
  Receive Date: 20100929
  Receipt Date: 20100929
  Transmission Date: 20110219
  Serious: Yes (Hospitalization)
  Sender: FDA-Public Use
  Company Number: AU-WYE-G06710310

PATIENT
  Age: 32 Month
  Sex: Male

DRUGS (1)
  1. DIMETAPP ELIXIR DROPS COLD AND ALLERGY [Suspect]
     Dosage: CONTENTS OF THE BOTTLE - 100ML BOTTLE
     Route: 048

REACTIONS (3)
  - ACCIDENTAL DRUG INTAKE BY CHILD [None]
  - ACCIDENTAL OVERDOSE [None]
  - PRODUCT CLOSURE ISSUE [None]
